FAERS Safety Report 8808034 (Version 1)
Quarter: 2012Q4

REPORT INFORMATION
  Report Type: Report from Study
  Country: AU (occurrence: AU)
  Receive Date: 20120925
  Receipt Date: 20120925
  Transmission Date: 20130627
  Serious: Yes (Life-Threatening, Hospitalization, Other)
  Sender: FDA-Public Use
  Company Number: AU-ASTRAZENECA-2011SE73376

PATIENT
  Age: 14052 Day
  Sex: Female

DRUGS (7)
  1. SEROQUEL XR [Suspect]
     Indication: PSYCHOTIC DISORDER
     Route: 048
  2. THYROXINE [Concomitant]
     Indication: HYPOTHYROIDISM
     Route: 048
  3. SULPHASALAZINE [Concomitant]
     Indication: INFLAMMATORY BOWEL DISEASE
     Route: 048
  4. VALIUM [Concomitant]
     Indication: ANXIETY
     Route: 048
  5. VALIUM [Concomitant]
     Indication: SEDATION
     Route: 048
  6. BLACKMORES P+BF [Concomitant]
     Indication: MEDICAL DIET
     Route: 048
  7. FOLATE [Concomitant]
     Indication: NEURAL TUBE DEFECT
     Route: 048

REACTIONS (2)
  - Exposure during pregnancy [Recovered/Resolved]
  - Caesarean section [Recovered/Resolved]
